FAERS Safety Report 18820552 (Version 1)
Quarter: 2021Q1

REPORT INFORMATION
  Report Type: Spontaneous
  Country: US (occurrence: US)
  Receive Date: 20210201
  Receipt Date: 20210201
  Transmission Date: 20210419
  Serious: Yes (Other)
  Sender: FDA-Public Use
  Company Number: None

PATIENT
  Age: 88 Year
  Sex: Male

DRUGS (42)
  1. ALBUTEROL SOLN NEB [Concomitant]
  2. CATHFLO ACTIVASE [Concomitant]
     Active Substance: ALTEPLASE
  3. BUDESONIDE NEB SOLN [Concomitant]
  4. GADAVIST [Concomitant]
     Active Substance: GADOBUTROL
  5. LEVETIRACETAM. [Concomitant]
     Active Substance: LEVETIRACETAM
  6. PROSOURCE POWDER NG [Concomitant]
  7. COLACE CAP [Concomitant]
  8. FLONASE NAS SPRAY [Concomitant]
  9. VISIPAQUE [Concomitant]
     Active Substance: IODIXANOL
  10. ACETAMINOPHEN ELIXIR NG/PEG [Concomitant]
  11. ACYCLOVIR. [Concomitant]
     Active Substance: ACYCLOVIR
  12. ALLOPURINOL. [Concomitant]
     Active Substance: ALLOPURINOL
  13. BROVANA NEB SOLUTION [Concomitant]
  14. CEFEPIME [Concomitant]
     Active Substance: CEFEPIME HYDROCHLORIDE
  15. ADDERALL TAB NG [Concomitant]
  16. PEPCID [Concomitant]
     Active Substance: FAMOTIDINE
  17. INSULIN [Concomitant]
     Active Substance: INSULIN NOS
  18. CHLORHEXIDINE GLUCONATE ORAL RINSE, 0.12% [Suspect]
     Active Substance: CHLORHEXIDINE GLUCONATE
     Indication: ANTIBIOTIC PROPHYLAXIS
     Dosage: ?          OTHER ROUTE:SWISH AND SPIT?
     Dates: start: 20200924, end: 20201023
  19. DEXTROSE 50% [Concomitant]
     Active Substance: DEXTROSE
  20. HYDROCORTISONE. [Concomitant]
     Active Substance: HYDROCORTISONE
  21. PREVACID [Concomitant]
     Active Substance: LANSOPRAZOLE
  22. LOVENOX [Concomitant]
     Active Substance: ENOXAPARIN SODIUM
  23. FOLIC ACID TAB [Concomitant]
  24. OMNIPAQUE [Concomitant]
     Active Substance: IOHEXOL
  25. AMPICILLIN [Concomitant]
     Active Substance: AMPICILLIN
  26. ATORVASTATIN TAB [Concomitant]
     Active Substance: ATORVASTATIN
  27. DESMOPRESSIN [Concomitant]
     Active Substance: DESMOPRESSIN
  28. FENTANYL. [Concomitant]
     Active Substance: FENTANYL
  29. GUAIFENESIN ER TAB [Concomitant]
  30. VENELEX OINT TOP [Concomitant]
  31. SYMBICORT [Concomitant]
     Active Substance: BUDESONIDE\FORMOTEROL FUMARATE DIHYDRATE
  32. GASTROGRAFIN [Concomitant]
     Active Substance: DIATRIZOATE MEGLUMINE\DIATRIZOATE SODIUM
  33. HEPARIN [Concomitant]
     Active Substance: HEPARIN SODIUM
  34. TRIAD PASTE [Concomitant]
  35. BANATROL PLUS PEG [Concomitant]
  36. CALCIUM GLUCONATE. [Concomitant]
     Active Substance: CALCIUM GLUCONATE
  37. CEFAZOLIN [Concomitant]
     Active Substance: CEFAZOLIN
  38. PLASMA?LYTE [Concomitant]
     Active Substance: ELECTROLYTES NOS
  39. FLUCONAZOLE. [Concomitant]
     Active Substance: FLUCONAZOLE
  40. GUAIFENESIN SYRUP [Concomitant]
  41. LACOSAMIDE. [Concomitant]
     Active Substance: LACOSAMIDE
  42. LACTATED RINGERS SOLUTION [Concomitant]
     Active Substance: CALCIUM CHLORIDE\POTASSIUM CHLORIDE\SODIUM CHLORIDE\SODIUM LACTATE

REACTIONS (8)
  - Pneumonia [None]
  - Haemodialysis [None]
  - Urinary tract infection [None]
  - Sepsis [None]
  - Retroperitoneal haemorrhage [None]
  - Burkholderia infection [None]
  - Product contamination microbial [None]
  - Respiratory failure [None]

NARRATIVE: CASE EVENT DATE: 20201007
